FAERS Safety Report 11453083 (Version 1)
Quarter: 2015Q3

REPORT INFORMATION
  Report Type: Spontaneous
  Country: US (occurrence: US)
  Receive Date: 20150831
  Receipt Date: 20150831
  Transmission Date: 20151125
  Serious: No
  Sender: FDA-Public Use
  Company Number: US-ELI_LILLY_AND_COMPANY-US200909003210

PATIENT
  Sex: Female

DRUGS (3)
  1. CYMBALTA [Suspect]
     Active Substance: DULOXETINE HYDROCHLORIDE
     Dosage: 60 MG, UNK
     Route: 048
     Dates: start: 20090913
  2. CYMBALTA [Suspect]
     Active Substance: DULOXETINE HYDROCHLORIDE
     Indication: ARTHRALGIA
     Dosage: 60 MG, DAILY (1/D)
     Route: 048
     Dates: start: 2006, end: 200907
  3. CYMBALTA [Suspect]
     Active Substance: DULOXETINE HYDROCHLORIDE
     Dosage: 60 MG, OTHER
     Dates: start: 200907, end: 2009

REACTIONS (8)
  - Abnormal dreams [Recovered/Resolved]
  - Personality disorder [Unknown]
  - Mental impairment [Unknown]
  - Confusional state [Unknown]
  - Off label use [Unknown]
  - Tension [Unknown]
  - Nausea [Unknown]
  - Irritability [Unknown]

NARRATIVE: CASE EVENT DATE: 2006
